FAERS Safety Report 16566977 (Version 1)
Quarter: 2019Q3

REPORT INFORMATION
  Report Type: Spontaneous
  Country: CN (occurrence: CN)
  Receive Date: 20190712
  Receipt Date: 20190712
  Transmission Date: 20191004
  Serious: Yes (Hospitalization, Other)
  Sender: FDA-Public Use
  Company Number: CN-PFIZER INC-2019292186

PATIENT
  Age: 69 Year
  Sex: Male
  Weight: 76 kg

DRUGS (1)
  1. NORVASC [Suspect]
     Active Substance: AMLODIPINE BESYLATE
     Indication: HYPERTENSION
     Dosage: 1 DF, 1X/DAY
     Route: 048
     Dates: start: 20180101, end: 20190617

REACTIONS (15)
  - Blood alkaline phosphatase increased [Recovering/Resolving]
  - Blood bilirubin increased [Recovering/Resolving]
  - Blood bilirubin unconjugated increased [Recovering/Resolving]
  - Abdominal pain upper [Unknown]
  - Gamma-glutamyltransferase increased [Recovering/Resolving]
  - Bilirubin conjugated increased [Recovering/Resolving]
  - Jaundice cholestatic [Unknown]
  - Gastrooesophageal reflux disease [Unknown]
  - Pruritus [Unknown]
  - Total bile acids increased [Recovering/Resolving]
  - Abdominal distension [Unknown]
  - Transaminases increased [Recovering/Resolving]
  - Scleral discolouration [Unknown]
  - Eructation [Unknown]
  - Chromaturia [Unknown]

NARRATIVE: CASE EVENT DATE: 20190607
